FAERS Safety Report 11698838 (Version 17)
Quarter: 2024Q4

REPORT INFORMATION
  Report Type: Report from Study
  Country: CO (occurrence: CO)
  Receive Date: 20151104
  Receipt Date: 20241108
  Transmission Date: 20250115
  Serious: Yes (Life-Threatening, Hospitalization, Other)
  Sender: INCYTE
  Company Number: CO-002147023-PHHY2015CO115739

PATIENT

DRUGS (15)
  1. RUXOLITINIB [Suspect]
     Active Substance: RUXOLITINIB
     Indication: Myelofibrosis
     Dosage: 30 MG, QD
     Route: 048
     Dates: start: 20150327
  2. RUXOLITINIB [Suspect]
     Active Substance: RUXOLITINIB
     Indication: Polycythaemia vera
     Dosage: 30 MG, Q12H
     Route: 048
     Dates: start: 201503
  3. RUXOLITINIB [Suspect]
     Active Substance: RUXOLITINIB
     Dosage: 15 MG, Q12H (IN THE MORNING AND THE 1 AT NIGHT)
     Route: 048
     Dates: start: 20150820
  4. RUXOLITINIB [Suspect]
     Active Substance: RUXOLITINIB
     Dosage: 10 MG (2 TABLETS OF 5 MG), Q12H
     Route: 048
  5. RUXOLITINIB [Suspect]
     Active Substance: RUXOLITINIB
     Dosage: 5 MG, TID (THREE TIMES A DAY)
     Route: 048
  6. RUXOLITINIB [Suspect]
     Active Substance: RUXOLITINIB
     Dosage: 15 MG, BID (TWICE A DAY)
     Route: 048
  7. RUXOLITINIB [Suspect]
     Active Substance: RUXOLITINIB
     Dosage: 30 MG, QD
     Route: 048
  8. RUXOLITINIB [Suspect]
     Active Substance: RUXOLITINIB
     Dosage: 15 MG, BID
     Route: 048
  9. RUXOLITINIB [Suspect]
     Active Substance: RUXOLITINIB
     Dosage: 15 MG, Q12H
     Route: 048
  10. RUXOLITINIB [Suspect]
     Active Substance: RUXOLITINIB
     Dosage: 30 MG, Q12H
     Route: 048
  11. METOPROLOL TARTRATE [Suspect]
     Active Substance: METOPROLOL TARTRATE
     Indication: Hypertension
     Dosage: 50 MG, QD
     Route: 048
  12. ASPIRIN [Concomitant]
     Active Substance: ASPIRIN
     Indication: Product used for unknown indication
     Dosage: 100 MG, QD
     Route: 048
  13. LEVOTHYROXINE SODIUM [Concomitant]
     Active Substance: LEVOTHYROXINE SODIUM
     Indication: Blood thyroid stimulating hormone increased
     Dosage: 50 MG, QD
     Route: 048
  14. OMEPRAZOLE [Concomitant]
     Active Substance: OMEPRAZOLE
     Indication: Gastritis
     Dosage: 200 MG, QD
     Route: 048
  15. ASPIRIN [Concomitant]
     Active Substance: ASPIRIN
     Indication: Product used for unknown indication
     Dosage: UNK
     Route: 065

REACTIONS (35)
  - Cerebral haemorrhage [Unknown]
  - Dysuria [Unknown]
  - Dizziness [Unknown]
  - Fatigue [Unknown]
  - Thrombosis [Not Recovered/Not Resolved]
  - Abdominal pain [Unknown]
  - Liver function test abnormal [Unknown]
  - Fluid retention [Unknown]
  - Asphyxia [Unknown]
  - Urinary tract infection bacterial [Not Recovered/Not Resolved]
  - Chromaturia [Unknown]
  - Urine odour abnormal [Unknown]
  - Hypophagia [Unknown]
  - Asthenia [Unknown]
  - Rash [Unknown]
  - Feeling abnormal [Unknown]
  - Pyrexia [Unknown]
  - Weight increased [Unknown]
  - Hepatic cirrhosis [Unknown]
  - White blood cell count increased [Unknown]
  - Pruritus [Unknown]
  - Kidney infection [Not Recovered/Not Resolved]
  - Haemoglobin decreased [Unknown]
  - White blood cell count decreased [Unknown]
  - Off label use [Unknown]
  - Skin burning sensation [Unknown]
  - Acne [Unknown]
  - Platelet count abnormal [Unknown]
  - Platelet count increased [Unknown]
  - Headache [Unknown]
  - Gait disturbance [Unknown]
  - Tachycardia [Unknown]
  - Philadelphia chromosome positive [Unknown]
  - Skin hypertrophy [Not Recovered/Not Resolved]
  - Urine output decreased [Unknown]

NARRATIVE: CASE EVENT DATE: 20150920
